FAERS Safety Report 14978581 (Version 2)
Quarter: 2018Q2

REPORT INFORMATION
  Report Type: Report from Study
  Country: US (occurrence: US)
  Receive Date: 20180606
  Receipt Date: 20180611
  Transmission Date: 20180711
  Serious: Yes (Hospitalization, Other)
  Sender: FDA-Public Use
  Company Number: US-009507513-1806USA000945

PATIENT
  Age: 20 Year
  Sex: Female
  Weight: 63.49 kg

DRUGS (1)
  1. NEXPLANON [Suspect]
     Active Substance: ETONOGESTREL
     Indication: CONTRACEPTION
     Dosage: 1 ROD PER 3 YEARS
     Route: 059
     Dates: start: 201712, end: 201801

REACTIONS (2)
  - Hemiplegia [Recovering/Resolving]
  - Embolic stroke [Recovering/Resolving]

NARRATIVE: CASE EVENT DATE: 201801
